FAERS Safety Report 17850180 (Version 6)
Quarter: 2021Q2

REPORT INFORMATION
  Report Type: Spontaneous
  Country: US (occurrence: US)
  Receive Date: 20200602
  Receipt Date: 20210420
  Transmission Date: 20210717
  Serious: Yes (Other)
  Sender: FDA-Public Use
  Company Number: US-PFIZER INC-2020175945

PATIENT
  Age: 94 Year
  Sex: Female

DRUGS (2)
  1. LYRICA [Suspect]
     Active Substance: PREGABALIN
     Dosage: 50 MG, 2X/DAY (50MG ? PO (PER ORAL) BID (TWO TIMES A DAY))
     Route: 048
  2. LYRICA [Suspect]
     Active Substance: PREGABALIN
     Indication: MONONEUROPATHY
     Dosage: 25 MG, 2X/DAY
     Route: 048

REACTIONS (3)
  - Movement disorder [Unknown]
  - Speech disorder [Unknown]
  - Parkinson^s disease [Unknown]
